FAERS Safety Report 11158087 (Version 7)
Quarter: 2018Q2

REPORT INFORMATION
  Report Type: Report from Study
  Country: CA (occurrence: CA)
  Receive Date: 20150603
  Receipt Date: 20180611
  Transmission Date: 20180711
  Serious: Yes (Hospitalization, Other)
  Sender: FDA-Public Use
  Company Number: CA-ROCHE-1347329

PATIENT
  Age: 34 Year
  Sex: Female

DRUGS (12)
  1. BACTRIM [Concomitant]
     Active Substance: SULFAMETHOXAZOLE\TRIMETHOPRIM
  2. VASOTEC (CANADA) [Concomitant]
  3. PROCYTOX [Concomitant]
     Active Substance: CYCLOPHOSPHAMIDE
  4. RITUXAN [Suspect]
     Active Substance: RITUXIMAB
     Indication: GRANULOMATOSIS WITH POLYANGIITIS
     Dosage: LAST RITUXAN DOSE: 19/DEC/2015
     Route: 042
     Dates: start: 20140129
  5. NYSTATIN. [Concomitant]
     Active Substance: NYSTATIN
  6. DIPHENHYDRAMINE HCL [Concomitant]
     Active Substance: DIPHENHYDRAMINE HYDROCHLORIDE
     Indication: PREMEDICATION
     Route: 048
     Dates: start: 20140224
  7. PREDNISONE. [Concomitant]
     Active Substance: PREDNISONE
  8. ACETAMINOPHEN. [Concomitant]
     Active Substance: ACETAMINOPHEN
     Indication: PREMEDICATION
     Route: 048
     Dates: start: 20140224
  9. DECADRON [Concomitant]
     Active Substance: DEXAMETHASONE
     Indication: PREMEDICATION
     Route: 065
     Dates: start: 20141002, end: 20150611
  10. FOLIC ACID. [Concomitant]
     Active Substance: FOLIC ACID
  11. SOLU-MEDROL [Concomitant]
     Active Substance: METHYLPREDNISOLONE SODIUM SUCCINATE
     Indication: PREMEDICATION
     Route: 065
     Dates: start: 20151219
  12. CELLCEPT [Suspect]
     Active Substance: MYCOPHENOLATE MOFETIL\MYCOPHENOLATE MOFETIL HYDROCHLORIDE
     Indication: PRODUCT USED FOR UNKNOWN INDICATION
     Route: 065

REACTIONS (8)
  - Sinus congestion [Recovered/Resolved]
  - Post procedural haemorrhage [Unknown]
  - Bladder disorder [Unknown]
  - Infusion related reaction [Recovered/Resolved]
  - Bladder neoplasm [Unknown]
  - Heart rate decreased [Unknown]
  - Throat irritation [Recovered/Resolved]
  - Dysuria [Recovering/Resolving]

NARRATIVE: CASE EVENT DATE: 20140129
